FAERS Safety Report 7423973-1 (Version None)
Quarter: 2011Q2

REPORT INFORMATION
  Report Type: 
  Country: None (occurrence: None)
  Receive Date: 20110419
  Receipt Date: 20110413
  Transmission Date: 20111010
  Serious: Yes (Disabling)
  Sender: FDA-Public Use
  Company Number: B0711985A

PATIENT
  Sex: Male

DRUGS (3)
  1. AVOLVE [Suspect]
     Dosage: .5MG PER DAY
     Route: 048
     Dates: start: 20091031
  2. XALATAN [Concomitant]
     Indication: GLAUCOMA
     Dosage: 1IUAX PER DAY
     Route: 031
  3. EVIPROSTAT [Concomitant]
     Dosage: 3IUAX PER DAY
     Route: 048
     Dates: start: 20091016

REACTIONS (1)
  - MACULAR DEGENERATION [None]
